FAERS Safety Report 17691531 (Version 2)
Quarter: 2021Q1

REPORT INFORMATION
  Report Type: Spontaneous
  Country: US (occurrence: US)
  Receive Date: 20200422
  Receipt Date: 20210105
  Transmission Date: 20210419
  Serious: Yes (Other)
  Sender: FDA-Public Use
  Company Number: US-ASTRAZENECA-2020SE51217

PATIENT
  Sex: Female

DRUGS (57)
  1. DILTIAZEM. [Concomitant]
     Active Substance: DILTIAZEM
     Route: 048
     Dates: start: 20180908
  2. ALPRAZOLAM. [Concomitant]
     Active Substance: ALPRAZOLAM
     Route: 048
     Dates: start: 20190130
  3. LIDOCAINE. [Concomitant]
     Active Substance: LIDOCAINE
  4. FLUVIRIN NOS [Concomitant]
     Active Substance: INFLUENZA VIRUS VACCINE
  5. XARELTO [Concomitant]
     Active Substance: RIVAROXABAN
     Route: 048
     Dates: start: 20181016
  6. METHYLPREDNISOLONE. [Concomitant]
     Active Substance: METHYLPREDNISOLONE
     Route: 048
     Dates: start: 20191219
  7. AZITHROMYCIN ANHYDROUS. [Concomitant]
     Active Substance: AZITHROMYCIN ANHYDROUS
     Route: 048
     Dates: start: 20170524
  8. NITROGLYCERINE [Concomitant]
     Active Substance: NITROGLYCERIN
  9. SIMVASTATIN. [Concomitant]
     Active Substance: SIMVASTATIN
     Route: 048
     Dates: start: 20181012
  10. ASPIRIN. [Concomitant]
     Active Substance: ASPIRIN
  11. PROPAFENONE. [Concomitant]
     Active Substance: PROPAFENONE
  12. NEXIUM [Suspect]
     Active Substance: ESOMEPRAZOLE MAGNESIUM
     Route: 048
     Dates: start: 201001, end: 201708
  13. PRILOSEC [Suspect]
     Active Substance: OMEPRAZOLE MAGNESIUM
     Route: 048
     Dates: start: 201001, end: 201708
  14. TRAZODONE [Concomitant]
     Active Substance: TRAZODONE HYDROCHLORIDE
     Route: 048
     Dates: start: 20180921
  15. CLOTRIMAZOLE AND BETAMETHASONE DIPROPIONATE [Concomitant]
     Active Substance: BETAMETHASONE\BETAMETHASONE DIPROPIONATE\CLOTRIMAZOLE
     Route: 065
     Dates: start: 20190102
  16. DICYCLOMINE [Concomitant]
     Active Substance: DICYCLOMINE HYDROCHLORIDE
  17. FLUOXETINE [Concomitant]
     Active Substance: FLUOXETINE HYDROCHLORIDE
  18. VENTOLIN [Concomitant]
     Active Substance: ALBUTEROL SULFATE
     Route: 065
  19. LOSARTAN. [Concomitant]
     Active Substance: LOSARTAN
  20. ADVAIR HFA [Concomitant]
     Active Substance: FLUTICASONE PROPIONATE\SALMETEROL XINAFOATE
  21. METOCLOPRAMIDE. [Concomitant]
     Active Substance: METOCLOPRAMIDE
  22. ONDANSETRON [Concomitant]
     Active Substance: ONDANSETRON
  23. SERTRALINE [Concomitant]
     Active Substance: SERTRALINE HYDROCHLORIDE
  24. GABAPENTIN. [Concomitant]
     Active Substance: GABAPENTIN
     Route: 065
     Dates: start: 20190108
  25. CEPHALEXIN. [Concomitant]
     Active Substance: CEPHALEXIN
     Route: 048
     Dates: start: 20190818
  26. BREO ELLIPTA [Concomitant]
     Active Substance: FLUTICASONE FUROATE\VILANTEROL TRIFENATATE
  27. VITAMIN D [Concomitant]
     Active Substance: VITAMIN D NOS
  28. TIZANIDINE. [Concomitant]
     Active Substance: TIZANIDINE
  29. AMOXICILLIN. [Concomitant]
     Active Substance: AMOXICILLIN
  30. ACYCLOVIR. [Concomitant]
     Active Substance: ACYCLOVIR
  31. WARFARIN [Concomitant]
     Active Substance: WARFARIN
     Route: 048
     Dates: start: 20180822
  32. ROPINIROLE. [Concomitant]
     Active Substance: ROPINIROLE
     Route: 048
     Dates: start: 20180822
  33. POTASSIUM CHLORIDE. [Concomitant]
     Active Substance: POTASSIUM CHLORIDE
     Route: 065
     Dates: start: 20180928
  34. LEVOFLOXACIN. [Concomitant]
     Active Substance: LEVOFLOXACIN
     Route: 065
  35. METHADONE [Concomitant]
     Active Substance: METHADONE HYDROCHLORIDE
     Route: 048
     Dates: start: 20161025
  36. ATENOLOL. [Concomitant]
     Active Substance: ATENOLOL
  37. CEFUROXIME. [Concomitant]
     Active Substance: CEFUROXIME
  38. NITROSTAT [Concomitant]
     Active Substance: NITROGLYCERIN
  39. DIGOXIN. [Concomitant]
     Active Substance: DIGOXIN
  40. BENICAR [Concomitant]
     Active Substance: OLMESARTAN MEDOXOMIL
  41. METOPROLOL TARTRATE. [Concomitant]
     Active Substance: METOPROLOL TARTRATE
     Route: 048
     Dates: start: 20180908
  42. MONTELUKAST [Concomitant]
     Active Substance: MONTELUKAST SODIUM
     Route: 048
     Dates: start: 20180928
  43. FUROSEMIDE. [Concomitant]
     Active Substance: FUROSEMIDE
     Route: 048
     Dates: start: 20180928
  44. LORATADINE. [Concomitant]
     Active Substance: LORATADINE
  45. LYRICA [Concomitant]
     Active Substance: PREGABALIN
  46. LIDODERM [Concomitant]
     Active Substance: LIDOCAINE
  47. HYDROXYZINE [Concomitant]
     Active Substance: HYDROXYZINE HYDROCHLORIDE
  48. PRILOSEC [Suspect]
     Active Substance: OMEPRAZOLE MAGNESIUM
     Dosage: GENERIC
     Route: 048
     Dates: start: 20170914
  49. PROTONIX [Suspect]
     Active Substance: PANTOPRAZOLE SODIUM
     Route: 065
     Dates: start: 201001, end: 201708
  50. PROTONIX [Suspect]
     Active Substance: PANTOPRAZOLE SODIUM
     Dosage: GENERIC
     Route: 048
     Dates: start: 20180810
  51. CIPROFLOXACIN. [Concomitant]
     Active Substance: CIPROFLOXACIN
     Route: 048
     Dates: start: 20180911
  52. DULOXETINE. [Concomitant]
     Active Substance: DULOXETINE
     Route: 048
     Dates: start: 20181229
  53. LABETALOL [Concomitant]
     Active Substance: LABETALOL\LABETALOL HYDROCHLORIDE
  54. IPRATROPIUM [Concomitant]
     Active Substance: IPRATROPIUM
  55. BACLOFEN. [Concomitant]
     Active Substance: BACLOFEN
  56. CYCLOBENZAPRINE. [Concomitant]
     Active Substance: CYCLOBENZAPRINE
  57. GLYBURIDE. [Concomitant]
     Active Substance: GLYBURIDE

REACTIONS (1)
  - Chronic kidney disease [Not Recovered/Not Resolved]
